FAERS Safety Report 12903989 (Version 2)
Quarter: 2016Q4

REPORT INFORMATION
  Report Type: Spontaneous
  Country: US (occurrence: US)
  Receive Date: 20161102
  Receipt Date: 20161122
  Transmission Date: 20170207
  Serious: Yes (Hospitalization)
  Sender: FDA-Public Use
  Company Number: US-JNJFOC-20161009620

PATIENT
  Sex: Female

DRUGS (2)
  1. DEPAKOTE [Suspect]
     Active Substance: DIVALPROEX SODIUM
     Indication: MOOD SWINGS
     Route: 065
     Dates: start: 20020107
  2. RISPERDAL [Suspect]
     Active Substance: RISPERIDONE
     Indication: PRODUCT USED FOR UNKNOWN INDICATION
     Route: 048
     Dates: start: 20020107

REACTIONS (6)
  - Hallucination [Unknown]
  - Head injury [Recovering/Resolving]
  - Victim of sexual abuse [Recovering/Resolving]
  - Verbal abuse [Recovering/Resolving]
  - Visual impairment [Unknown]
  - Speech disorder [Unknown]
